FAERS Safety Report 8194312-6 (Version None)
Quarter: 2012Q1

REPORT INFORMATION
  Report Type: 
  Country: None (occurrence: None)
  Receive Date: 20120308
  Receipt Date: 20120302
  Transmission Date: 20120608
  Serious: Yes (Death)
  Sender: FDA-Public Use
  Company Number: NO-BAXTER-2012BH006701

PATIENT
  Sex: Male

DRUGS (7)
  1. CYCLOPHOSPHAMIDE [Suspect]
     Indication: TESTIS CANCER
     Route: 065
  2. CISPLATIN [Suspect]
     Indication: TESTIS CANCER
     Route: 065
  3. ETOPOSIDE [Suspect]
     Indication: TESTIS CANCER
     Route: 065
  4. BLEOMYCIN SULFATE [Suspect]
     Indication: TESTIS CANCER
     Route: 065
  5. ETOPOSIDE [Suspect]
     Route: 065
  6. CARBOPLATIN [Suspect]
     Indication: TESTIS CANCER
     Route: 065
  7. IFOSFAMIDE [Suspect]
     Indication: TESTIS CANCER
     Route: 065

REACTIONS (1)
  - TOXICITY TO VARIOUS AGENTS [None]
